FAERS Safety Report 18833600 (Version 1)
Quarter: 2021Q1

REPORT INFORMATION
  Report Type: Spontaneous
  Country: US (occurrence: US)
  Receive Date: 20210203
  Receipt Date: 20210203
  Transmission Date: 20210419
  Serious: No
  Sender: FDA-Public Use
  Company Number: US-ALLERGAN-2009387US

PATIENT
  Sex: Female

DRUGS (3)
  1. BOTOX COSMETIC [Suspect]
     Active Substance: ONABOTULINUMTOXINA
     Indication: SPASMODIC DYSPHONIA
     Dosage: 4.66 UNITS, SINGLE
     Dates: start: 20200228, end: 20200228
  2. BOTOX COSMETIC [Suspect]
     Active Substance: ONABOTULINUMTOXINA
     Dosage: 4.66 UNITS, SINGLE
     Dates: start: 20200214, end: 20200214
  3. BOTOX COSMETIC [Suspect]
     Active Substance: ONABOTULINUMTOXINA
     Dosage: UNK UNK, SINGLE
     Dates: start: 20190111, end: 20190111

REACTIONS (2)
  - Drug ineffective [Unknown]
  - Multiple use of single-use product [Unknown]
